FAERS Safety Report 8554519-2 (Version None)
Quarter: 2012Q3

REPORT INFORMATION
  Report Type: 
  Country: None (occurrence: None)
  Receive Date: 20120726
  Receipt Date: 20120726
  Transmission Date: 20120928
  Serious: Yes (Life-Threatening, Hospitalization, Disabling)
  Sender: FDA-Public Use
  Company Number: None

PATIENT
  Age: 31 Year
  Sex: Female
  Weight: 49.8957 kg

DRUGS (1)
  1. CIPROFLOXACIN HCL [Suspect]
     Indication: BACTERIAL INFECTION
     Dosage: 1 PILL, 2 PER DAY, PO
     Route: 048
     Dates: start: 20120805, end: 20120806

REACTIONS (12)
  - FEELING OF DESPAIR [None]
  - TENDON PAIN [None]
  - PAIN [None]
  - TREMOR [None]
  - ABASIA [None]
  - HEADACHE [None]
  - DYSPNOEA [None]
  - MUSCLE TWITCHING [None]
  - QUALITY OF LIFE DECREASED [None]
  - SLEEP TERROR [None]
  - HAIR COLOUR CHANGES [None]
  - STRESS [None]
